FAERS Safety Report 24773007 (Version 1)
Quarter: 2024Q4

REPORT INFORMATION
  Report Type: Spontaneous
  Country: GB (occurrence: GB)
  Receive Date: 20241225
  Receipt Date: 20241225
  Transmission Date: 20250114
  Serious: Yes (Hospitalization, Other)
  Sender: Unknown Manufacturer
  Company Number: None

PATIENT
  Age: 76 Year
  Sex: Male

DRUGS (20)
  1. SIMVASTATIN [Suspect]
     Active Substance: SIMVASTATIN
     Indication: Product used for unknown indication
  2. CODEINE [Concomitant]
     Active Substance: CODEINE
     Indication: Product used for unknown indication
     Dosage: 15 MG TABLETS TAKE 1-2 EVERY 6 HRS PRN IF NO RELIEF WITH PARACETAMOL 100 TABLET
  3. CIPROFLOXACIN HYDROCHLORIDE\DEXAMETHASONE [Concomitant]
     Active Substance: CIPROFLOXACIN HYDROCHLORIDE\DEXAMETHASONE
     Indication: Product used for unknown indication
  4. Decapeptyl [Concomitant]
     Indication: Product used for unknown indication
     Dosage: 22.5 MG POWDER AND SOLVENT FOR SUSPENSION FOR INJECTION VIALS AS DIRECTED - DUE THIS WEEK OR NEXT, N
  5. Dermol Cream [Concomitant]
     Indication: Product used for unknown indication
     Dosage: 500 LOTION APPLY TO SKIN OR USE AS A SOAP SUBSTITUTE - PRN
  6. Dermol Cream [Concomitant]
     Dosage: 600 BATH EMOLLIENT ADD 15 ML-30 ML TO BATH WATER
  7. Dermol Cream [Concomitant]
     Dosage: 500 GRAM BOTTLE APPLY TO SKIN OR USE AS A SOAP SUBSTITUTE - PRN
  8. Ensure Plus Juce liquid [Concomitant]
     Indication: Product used for unknown indication
     Dosage: TWO TO BE TAKEN EACH DAY 36 X 220ML - MILKSHAKE ON TTO
  9. Vit D capsules [Concomitant]
     Indication: Product used for unknown indication
  10. Tramazoline + Dexamethasone [Concomitant]
     Indication: Product used for unknown indication
  11. DEXAMETHASONE [Concomitant]
     Active Substance: DEXAMETHASONE
     Indication: Product used for unknown indication
     Dosage: 500 MICROGRAM TABLETS TO BE TAKEN AS DIRECTED- TAKES 1 OM DOSE INCREASED BY INPAT ONCOL
  12. LANSOPRAZOLE [Concomitant]
     Active Substance: LANSOPRAZOLE
     Indication: Product used for unknown indication
     Dosage: 30 MG GASTRO-RESISTANT CAPSULES ONE TO BE TAKEN EACH MORNING
  13. SIMVASTATIN [Concomitant]
     Active Substance: SIMVASTATIN
     Indication: Product used for unknown indication
     Dosage: 20 MG TABLETS ONE TO BE TAKEN AT NIGHT
  14. Trimovate cream [Concomitant]
     Indication: Product used for unknown indication
     Dosage: APPLY BD PRN- PRN
  15. CYCLIZINE [Concomitant]
     Active Substance: CYCLIZINE
     Indication: Product used for unknown indication
     Dosage: 50 MG TABLETS ONE TO BE TAKEN UP TO THREE TIMES A DAY FOR NAUSEA 42 TABLET- TAKES TDS PRN
  16. AZATHIOPRINE [Concomitant]
     Active Substance: AZATHIOPRINE
     Indication: Product used for unknown indication
     Dosage: 25 MG 1OM- HAS NOT BEEN USING RECENTLY DUE TO ILLNESS
  17. Epaderm cream [Concomitant]
     Indication: Product used for unknown indication
     Dosage: AS NEEDED- PRN
  18. ALLOPURINOL [Concomitant]
     Active Substance: ALLOPURINOL
     Indication: Product used for unknown indication
     Dosage: 100 MG TABLETS ONE TO BE TAKEN DAILY
  19. DIAZEPAM [Concomitant]
     Active Substance: DIAZEPAM
     Indication: Product used for unknown indication
     Dosage: DIAZEPAM 2 MG TABLETS 1-2 TO BE TAKEN THREE TIMES A DAY PRN FOR ACUTE ANXIETY 28 TABLET- ONLY USING
  20. Berrocca [Concomitant]
     Indication: Product used for unknown indication

REACTIONS (1)
  - Neck pain [Unknown]
